FAERS Safety Report 9803231 (Version 1)
Quarter: 2014Q1

REPORT INFORMATION
  Report Type: Spontaneous
  Country: US (occurrence: None)
  Receive Date: 20140107
  Receipt Date: 20140107
  Transmission Date: 20141002
  Serious: Yes (Disabling, Other)
  Sender: FDA-Public Use
  Company Number: None

PATIENT
  Age: 53 Year
  Sex: Female
  Weight: 99.79 kg

DRUGS (16)
  1. LEVOFLOXACIN [Suspect]
     Indication: CYSTITIS
     Route: 048
     Dates: start: 20130621, end: 20130622
  2. LEVOFLOXACIN [Suspect]
     Indication: BRONCHITIS
     Route: 048
     Dates: start: 20130621, end: 20130622
  3. SIMVASTATIN [Concomitant]
  4. CARVEDILOL [Concomitant]
  5. PLAVIX [Concomitant]
  6. RANEXA [Concomitant]
  7. LOSARTIN [Concomitant]
  8. JANUMET [Concomitant]
  9. PANTOPRAZOLE [Concomitant]
  10. MELOXICAM [Concomitant]
  11. BLACK COHOSH [Concomitant]
  12. VITAMIN D [Concomitant]
  13. FISH OIL [Concomitant]
  14. COQ MAX [Concomitant]
  15. CINNAMON [Concomitant]
  16. VITAMIN B COMPLEX [Concomitant]

REACTIONS (10)
  - Hypoaesthesia [None]
  - Pain [None]
  - Dizziness [None]
  - Musculoskeletal stiffness [None]
  - Discomfort [None]
  - Convulsion [None]
  - Rash [None]
  - Fear [None]
  - Visual impairment [None]
  - Vomiting [None]
